FAERS Safety Report 7867433-2 (Version None)
Quarter: 2011Q4

REPORT INFORMATION
  Report Type: 
  Country: None (occurrence: None)
  Receive Date: 20111028
  Receipt Date: 20111017
  Transmission Date: 20120403
  Serious: Yes (Other)
  Sender: FDA-Public Use
  Company Number: CA-MERCK-1110USA02395

PATIENT
  Age: 60 Year
  Sex: Female

DRUGS (2)
  1. ISENTRESS [Suspect]
     Route: 065
  2. ABACAVIR SULFATE AND LAMIVUDINE [Concomitant]
     Route: 065

REACTIONS (2)
  - MOOD ALTERED [None]
  - DEPRESSION [None]
